FAERS Safety Report 11585497 (Version 2)
Quarter: 2015Q4

REPORT INFORMATION
  Report Type: Spontaneous
  Country: US (occurrence: US)
  Receive Date: 20151001
  Receipt Date: 20151221
  Transmission Date: 20160304
  Serious: Yes (Other)
  Sender: FDA-Public Use
  Company Number: US-PFIZER INC-2015319809

PATIENT
  Age: 80 Year
  Sex: Male
  Weight: 72.56 kg

DRUGS (7)
  1. VITAMIN B12 [Concomitant]
     Active Substance: CYANOCOBALAMIN
     Dosage: UNK
  2. INLYTA [Suspect]
     Active Substance: AXITINIB
     Dosage: 5 MG
     Dates: start: 20150818
  3. ASPIRIN. [Concomitant]
     Active Substance: ASPIRIN
     Dosage: UNK (81)
  4. VITAMIN D [Concomitant]
     Active Substance: CHOLECALCIFEROL
     Dosage: UNK
  5. INLYTA [Suspect]
     Active Substance: AXITINIB
     Indication: RENAL CELL CARCINOMA
     Dosage: 5 MG, 1X/DAY
     Dates: start: 20150723, end: 20150909
  6. INLYTA [Suspect]
     Active Substance: AXITINIB
     Dosage: WAS TAKING HALF DOSE
  7. FISH OIL [Concomitant]
     Active Substance: FISH OIL
     Dosage: UNK

REACTIONS (5)
  - Dementia [Not Recovered/Not Resolved]
  - Disease progression [Unknown]
  - Pain [Unknown]
  - Blood pressure increased [Recovered/Resolved]
  - Renal cell carcinoma [Unknown]
